FAERS Safety Report 23921991 (Version 2)
Quarter: 2024Q3

REPORT INFORMATION
  Report Type: Spontaneous
  Country: US (occurrence: US)
  Receive Date: 20240531
  Receipt Date: 20240716
  Transmission Date: 20241017
  Serious: No
  Sender: GLAXOSMITHKLINE
  Company Number: US-GSKCCFUS-Case-02017550_AE-111967

PATIENT
  Sex: Female

DRUGS (1)
  1. ARNUITY ELLIPTA [Suspect]
     Active Substance: FLUTICASONE FUROATE
     Indication: Product used for unknown indication
     Dosage: 1 PUFF(S), QD, 50 MCG
     Route: 055

REACTIONS (3)
  - Product dose omission issue [Unknown]
  - Product taste abnormal [Unknown]
  - Product complaint [Unknown]
